FAERS Safety Report 15557871 (Version 1)
Quarter: 2018Q4

REPORT INFORMATION
  Report Type: Spontaneous
  Country: FR (occurrence: FR)
  Receive Date: 20181027
  Receipt Date: 20181027
  Transmission Date: 20190205
  Serious: Yes (Hospitalization)
  Sender: FDA-Public Use
  Company Number: FR-009507513-1810FRA007228

PATIENT
  Age: 49 Year
  Sex: Female
  Weight: 130 kg

DRUGS (6)
  1. SERETIDE [Suspect]
     Active Substance: FLUTICASONE PROPIONATE\SALMETEROL XINAFOATE
     Indication: ASTHMA
  2. LASILIX [Suspect]
     Active Substance: FUROSEMIDE
     Indication: ESSENTIAL HYPERTENSION
     Dosage: 40 MILLIGRAM
  3. MONO-TILDIEM [Suspect]
     Active Substance: DILTIAZEM HYDROCHLORIDE
     Dosage: 300 MILLIGRAM
     Route: 048
  4. ZOLPIDEM TARTRATE. [Suspect]
     Active Substance: ZOLPIDEM TARTRATE
     Indication: SLEEP DISORDER
  5. EZETROL [Suspect]
     Active Substance: EZETIMIBE
     Indication: TYPE IIA HYPERLIPIDAEMIA
     Dosage: 10 MILLIGRAM
     Route: 048
     Dates: start: 20050901, end: 20060204
  6. VENTOLINE (ALBUTEROL SULFATE) [Suspect]
     Active Substance: ALBUTEROL SULFATE
     Indication: ASTHMA

REACTIONS (3)
  - Myalgia [Unknown]
  - Blood creatine phosphokinase increased [Unknown]
  - Renal failure [Unknown]

NARRATIVE: CASE EVENT DATE: 20060204
